FAERS Safety Report 5921472-7 (Version None)
Quarter: 2008Q4

REPORT INFORMATION
  Report Type: 
  Country: None (occurrence: None)
  Receive Date: 20081016
  Receipt Date: 20081016
  Transmission Date: 20090506
  Serious: Yes (Hospitalization, Disabling, Other)
  Sender: FDA-Public Use
  Company Number: None

PATIENT
  Sex: Female
  Weight: 79.3795 kg

DRUGS (1)
  1. ZOLOFT [Suspect]
     Dosage: 50 MG INCREASED 100MG HS ORAL
     Route: 048

REACTIONS (6)
  - CONFUSIONAL STATE [None]
  - FRUSTRATION [None]
  - GRAND MAL CONVULSION [None]
  - HOSTILITY [None]
  - MEMORY IMPAIRMENT [None]
  - VISUAL IMPAIRMENT [None]
